FAERS Safety Report 10194988 (Version 1)
Quarter: 2014Q2

REPORT INFORMATION
  Report Type: Spontaneous
  Country: US (occurrence: US)
  Receive Date: 20140526
  Receipt Date: 20140526
  Transmission Date: 20141212
  Serious: No
  Sender: FDA-Public Use
  Company Number: US-PFIZER INC-2014142512

PATIENT
  Age: 55 Year
  Sex: Male
  Weight: 122.45 kg

DRUGS (4)
  1. CHANTIX [Suspect]
     Indication: SMOKING CESSATION THERAPY
     Dosage: 1 MG, 2X/DAY
     Dates: start: 201403
  2. SYMBICORT [Concomitant]
     Dosage: UNK, 2X/DAY
  3. PRO-AIR [Concomitant]
     Dosage: UNK, AS NEEDED
  4. SPIRIVA [Concomitant]
     Dosage: UNK, DAILY

REACTIONS (3)
  - Hyposmia [Not Recovered/Not Resolved]
  - Abdominal discomfort [Not Recovered/Not Resolved]
  - Rash [Not Recovered/Not Resolved]
